FAERS Safety Report 6440995-8 (Version None)
Quarter: 2009Q4

REPORT INFORMATION
  Report Type: 
  Country: None (occurrence: None)
  Receive Date: 20091116
  Receipt Date: 20091103
  Transmission Date: 20100525
  Serious: Yes (Death, Hospitalization)
  Sender: FDA-Public Use
  Company Number: DE-ROCHE-649411

PATIENT
  Sex: Female
  Weight: 88.5 kg

DRUGS (21)
  1. METHOXY POLYETHYLENE GLYCOL-EPOETIN BETA [Suspect]
     Dosage: DOSAGE FORM:PFS. DATE OF LAST DOSE PRIOR TO SAE: 25 SEP 2009
     Route: 042
     Dates: start: 20090424, end: 20091019
  2. NITROLINGUAL [Concomitant]
     Dosage: FORM: SPRAY
     Dates: start: 20070412, end: 20091019
  3. MARCUMAR [Concomitant]
     Dates: start: 20051123, end: 20091019
  4. PHOS-EX [Concomitant]
     Dosage: FORM: FILM TABLET
  5. METAMIZOLUM NATRICUM [Concomitant]
     Dosage: DRUG NAME REPORTED AS METAMIZOLAMNATRIUM.
     Dates: start: 20071020, end: 20091019
  6. DIAZEPAM [Concomitant]
     Dosage: STRENGTH REPORTED AS 10 MG/ML
     Dates: start: 20071101, end: 20091019
  7. SIMVASTIN [Concomitant]
     Dosage: FROM: FILM TABLET
     Dates: start: 20070327, end: 20091019
  8. PANTOZOL [Concomitant]
     Dates: start: 20070327, end: 20091019
  9. ACTRAPID [Concomitant]
     Dates: start: 20070327, end: 20091019
  10. SEROQUEL [Concomitant]
     Dosage: STRENGTH: 25 MG. FORM: FILM TABLET
     Dates: start: 20080219, end: 20091019
  11. SEROQUEL [Concomitant]
     Dosage: STRENGTH REPORTED AS 100 MG
  12. LEVODOPA [Concomitant]
     Dates: start: 20080517, end: 20091019
  13. NOVALGIN [Concomitant]
     Dosage: FORM: FILM TABLET
  14. FENISTIL [Concomitant]
     Dosage: FROM: RETARDKAPS
  15. RESTEX [Concomitant]
     Dosage: FROM: RETARDKAPS
  16. FENTANYL-100 [Concomitant]
  17. GABAPENTIN [Concomitant]
     Dosage: FORM: HARDCAP
  18. FERRLECIT [Concomitant]
     Route: 042
  19. LANICOR [Concomitant]
     Route: 042
  20. NOVALGIN [Concomitant]
     Route: 042
  21. CALCIUM ACETATE [Concomitant]
     Dosage: DRUG NAME: CALCIUM DIACETATE
     Dates: start: 20051123, end: 20091019

REACTIONS (2)
  - HYPERVOLAEMIA [None]
  - SUDDEN DEATH [None]
